FAERS Safety Report 8106396 (Version 3)
Quarter: 2012Q4

REPORT INFORMATION
  Report Type: 
  Country: US (occurrence: US)
  Receive Date: 20110825
  Receipt Date: 20121206
  Transmission Date: 20130627
  Serious: Yes (Hospitalization)
  Sender: FDA-Public Use
  Company Number: US-BAYER-2011-075162

PATIENT
  Age: 32 Year
  Sex: Female
  Weight: 62 kg

DRUGS (7)
  1. YAZ [Suspect]
     Dosage: UNK
     Dates: start: 2007, end: 200909
  2. VICODIN [Concomitant]
     Indication: PAIN
     Dosage: UNK UNK, PRN
  3. PLAQUENIL [Concomitant]
  4. MOBIC [Concomitant]
  5. PRISTIQ [Concomitant]
     Dosage: 100 mg, UNK
     Dates: start: 20080922, end: 20100110
  6. DARVOCET [Concomitant]
  7. ACETAMINOPHEN W/OXYCODONE [Concomitant]
     Dosage: UNK
     Dates: start: 20090604

REACTIONS (3)
  - Subclavian vein thrombosis [None]
  - Injury [None]
  - Thrombosis [None]
